FAERS Safety Report 6182748-4 (Version None)
Quarter: 2009Q2

REPORT INFORMATION
  Report Type: 
  Country: None (occurrence: None)
  Receive Date: 20090507
  Receipt Date: 20090428
  Transmission Date: 20091009
  Serious: Yes (Death)
  Sender: FDA-Public Use
  Company Number: JP-NOVOPROD-282845

PATIENT
  Sex: Female
  Weight: 43 kg

DRUGS (2)
  1. NOVOSEVEN [Suspect]
     Indication: ACQUIRED HAEMOPHILIA
     Dosage: 4.8MG X 2
     Route: 042
     Dates: start: 20081204, end: 20081204
  2. NOVOSEVEN [Suspect]
     Dosage: 4.8MG X 3
     Dates: start: 20081205, end: 20081205

REACTIONS (1)
  - PNEUMONIA [None]
